FAERS Safety Report 8514812-6 (Version None)
Quarter: 2012Q3

REPORT INFORMATION
  Report Type: 
  Country: None (occurrence: None)
  Receive Date: 20120717
  Receipt Date: 20120713
  Transmission Date: 20120928
  Serious: Yes (Hospitalization, Other)
  Sender: FDA-Public Use
  Company Number: US-ROCHE-1076636

PATIENT
  Sex: Female

DRUGS (5)
  1. COPEGUS [Suspect]
     Indication: HEPATITIS C
     Dates: start: 20120424, end: 20120601
  2. COPEGUS [Suspect]
     Dates: start: 20120606, end: 20120612
  3. PEGASYS [Suspect]
     Indication: HEPATITIS C
     Dates: start: 20120424
  4. TELAPREVIR [Suspect]
     Indication: HEPATITIS C
     Dates: start: 20120424, end: 20120601
  5. TELAPREVIR [Suspect]
     Dates: start: 20120612, end: 20120612

REACTIONS (3)
  - PANCREATITIS [None]
  - ANAEMIA [None]
  - PSEUDOCYST [None]
